FAERS Safety Report 9481475 (Version 2)
Quarter: 2013Q3

REPORT INFORMATION
  Report Type: Spontaneous
  Country: CA (occurrence: CA)
  Receive Date: 20130828
  Receipt Date: 20130828
  Transmission Date: 20140515
  Serious: Yes (Hospitalization, Other)
  Sender: FDA-Public Use
  Company Number: CA-AMGEN-KDL169034

PATIENT
  Sex: Male

DRUGS (1)
  1. ENBREL [Suspect]
     Indication: RHEUMATOID ARTHRITIS
     Dosage: 25 MG, 2 TIMES/WK
     Route: 058
     Dates: start: 20040107, end: 20051213

REACTIONS (7)
  - Condition aggravated [Unknown]
  - Endocrine disorder [Unknown]
  - Condition aggravated [Unknown]
  - Oral herpes [Unknown]
  - Wound infection [Unknown]
  - Lymphoma [Unknown]
  - Pyrexia [Unknown]
